FAERS Safety Report 5976385-1 (Version None)
Quarter: 2008Q4

REPORT INFORMATION
  Report Type: 
  Country: None (occurrence: None)
  Receive Date: 20081202
  Receipt Date: 20081125
  Transmission Date: 20090506
  Serious: Yes (Hospitalization)
  Sender: FDA-Public Use
  Company Number: KP-ROXANE LABORATORIES, INC.-2008-RO-00285RO

PATIENT
  Age: 42 Year
  Sex: Female

DRUGS (5)
  1. LITHIUM CARBONATE [Suspect]
     Indication: MANIA
  2. BUPROPION HCL [Suspect]
     Indication: DEPRESSIVE SYMPTOM
  3. CLONAZEPAM [Suspect]
     Indication: DEPRESSIVE SYMPTOM
  4. DIVALPROEX SODIUM [Suspect]
  5. QUETIAPINE FUMARATE [Concomitant]
     Indication: ELEVATED MOOD

REACTIONS (10)
  - ASTHENIA [None]
  - CEREBRAL CALCIFICATION [None]
  - DEMENTIA [None]
  - DEPRESSED LEVEL OF CONSCIOUSNESS [None]
  - DYSARTHRIA [None]
  - INAPPROPRIATE AFFECT [None]
  - LOGORRHOEA [None]
  - MANIA [None]
  - NEUROLOGICAL EXAMINATION ABNORMAL [None]
  - REFUSAL OF TREATMENT BY PATIENT [None]
